FAERS Safety Report 14308133 (Version 1)
Quarter: 2017Q4

REPORT INFORMATION
  Report Type: Spontaneous
  Country: US (occurrence: US)
  Receive Date: 20171220
  Receipt Date: 20171220
  Transmission Date: 20180321
  Serious: Yes (Hospitalization)
  Sender: FDA-Public Use
  Company Number: US-SA-2017SA256097

PATIENT
  Sex: Female

DRUGS (2)
  1. FABRAZYME [Suspect]
     Active Substance: AGALSIDASE BETA
     Route: 041
  2. EXCEDRIN MIGRAINE [Suspect]
     Active Substance: ACETAMINOPHEN\ASPIRIN\CAFFEINE
     Indication: PAIN
     Route: 065

REACTIONS (9)
  - Visual impairment [Unknown]
  - Speech disorder [Unknown]
  - Pain [Recovered/Resolved]
  - Hypoaesthesia [Unknown]
  - Pupillary light reflex tests abnormal [Unknown]
  - Vision blurred [Unknown]
  - Tunnel vision [Unknown]
  - Mydriasis [Unknown]
  - Nuclear magnetic resonance imaging abnormal [Unknown]

NARRATIVE: CASE EVENT DATE: 20171123
